FAERS Safety Report 24785838 (Version 2)
Quarter: 2025Q1

REPORT INFORMATION
  Report Type: Report from Study
  Country: CO (occurrence: CO)
  Receive Date: 20241229
  Receipt Date: 20250122
  Transmission Date: 20250409
  Serious: Yes (Hospitalization, Other)
  Sender: ALEXION PHARMACEUTICALS
  Company Number: CO-AstraZeneca-CH-00772001A

PATIENT
  Age: 25 Year

DRUGS (1)
  1. DURVALUMAB [Suspect]
     Active Substance: DURVALUMAB
     Indication: Lung neoplasm malignant
     Dosage: 1500 MILLIGRAM, Q3W

REACTIONS (5)
  - Vein disorder [Recovering/Resolving]
  - Contusion [Recovering/Resolving]
  - Neuroendocrine tumour of the lung [Recovering/Resolving]
  - Vascular compression [Recovering/Resolving]
  - Therapy cessation [Unknown]
